FAERS Safety Report 10371123 (Version 1)
Quarter: 2014Q3

REPORT INFORMATION
  Report Type: Spontaneous
  Country: US (occurrence: None)
  Receive Date: 20140806
  Receipt Date: 20140806
  Transmission Date: 20150326
  Serious: No
  Sender: FDA-Public Use
  Company Number: 14AE034

PATIENT
  Age: 70 Year
  Sex: Female

DRUGS (2)
  1. EQUATE SLEEP AID [Suspect]
     Active Substance: DOXYLAMINE SUCCINATE
     Indication: SLEEP DISORDER
     Route: 048
     Dates: start: 20140715, end: 20140717
  2. QUINAPRIL [Concomitant]
     Active Substance: QUINAPRIL\QUINAPRIL HYDROCHLORIDE

REACTIONS (4)
  - Vertigo [None]
  - Dizziness [None]
  - Hypertension [None]
  - No therapeutic response [None]

NARRATIVE: CASE EVENT DATE: 20140723
